FAERS Safety Report 16961440 (Version 1)
Quarter: 2019Q4

REPORT INFORMATION
  Report Type: Spontaneous
  Country: US (occurrence: US)
  Receive Date: 20190906
  Receipt Date: 20190906
  Transmission Date: 20200122
  Serious: No
  Sender: FDA-Public Use
  Company Number: None

PATIENT
  Sex: Male

DRUGS (2)
  1. PREDNISONE. [Suspect]
     Active Substance: PREDNISONE
     Indication: PROSTATE CANCER
     Route: 048
     Dates: start: 201808
  2. NO DRUG NAME [Concomitant]
     Indication: PROSTATE CANCER
     Route: 048
     Dates: start: 201807

REACTIONS (1)
  - Nausea [None]
